FAERS Safety Report 16736997 (Version 2)
Quarter: 2019Q4

REPORT INFORMATION
  Report Type: Report from Study
  Country: US (occurrence: US)
  Receive Date: 20190823
  Receipt Date: 20191211
  Transmission Date: 20200122
  Serious: Yes (Death, Other)
  Sender: FDA-Public Use
  Company Number: US-UCBSA-2019035476

PATIENT
  Age: 53 Year
  Sex: Male

DRUGS (1)
  1. LACOSAMIDE. [Suspect]
     Active Substance: LACOSAMIDE
     Indication: EPILEPSY
     Dosage: 200 MILLIGRAM, 2X/DAY (BID)
     Route: 048

REACTIONS (2)
  - Brain neoplasm malignant [Unknown]
  - Death [Fatal]

NARRATIVE: CASE EVENT DATE: 20191110
